FAERS Safety Report 6620095-4 (Version None)
Quarter: 2010Q1

REPORT INFORMATION
  Report Type: 
  Country: None (occurrence: None)
  Receive Date: 20100309
  Receipt Date: 20100301
  Transmission Date: 20100710
  Serious: Yes (Other)
  Sender: FDA-Public Use
  Company Number: US-SANOFI-AVENTIS-2010SA012424

PATIENT
  Age: 54 Year
  Sex: Male

DRUGS (4)
  1. LANTUS [Suspect]
     Dosage: DOSE RANGED 20-22 UNITS QD DOSE:20 UNIT(S)
     Route: 058
     Dates: start: 20020101
  2. HUMALOG [Suspect]
  3. KENALOG [Concomitant]
     Dosage: INJECTION GIVEN FOR TENDONITIS DATE NOS
  4. APIDRA [Concomitant]
     Dates: start: 20091001

REACTIONS (4)
  - BLOOD GLUCOSE INCREASED [None]
  - FALL [None]
  - HYPOGLYCAEMIC UNCONSCIOUSNESS [None]
  - TENDONITIS [None]
